FAERS Safety Report 14662846 (Version 1)
Quarter: 2018Q1

REPORT INFORMATION
  Report Type: Spontaneous
  Country: IN (occurrence: IN)
  Receive Date: 20180321
  Receipt Date: 20180321
  Transmission Date: 20180509
  Serious: No
  Sender: FDA-Public Use
  Company Number: IN-LUPIN PHARMACEUTICALS INC.-2017-03268

PATIENT
  Age: 35 Year
  Sex: Male

DRUGS (1)
  1. LUPICEF-O FILM C. TABS 200 MG [Suspect]
     Active Substance: CEFIXIME
     Indication: PYREXIA
     Dosage: 1 DF, BID
     Route: 048
     Dates: start: 20170617, end: 20170617

REACTIONS (3)
  - Pruritus [Recovering/Resolving]
  - Urticaria [Recovering/Resolving]
  - Erythema [Recovering/Resolving]

NARRATIVE: CASE EVENT DATE: 20170617
